FAERS Safety Report 9480644 (Version 1)
Quarter: 2013Q3

REPORT INFORMATION
  Report Type: Spontaneous
  Country: US (occurrence: US)
  Receive Date: 20130828
  Receipt Date: 20130828
  Transmission Date: 20140515
  Serious: Yes (Hospitalization)
  Sender: FDA-Public Use
  Company Number: US-AMGEN-KDL112267

PATIENT
  Age: 59 Year
  Sex: Male

DRUGS (2)
  1. ENBREL [Suspect]
     Indication: RHEUMATOID ARTHRITIS
     Dosage: 25 MG, 2 TIMES/WK
     Route: 058
     Dates: start: 19980119
  2. METHOTREXATE [Concomitant]

REACTIONS (4)
  - Lung operation [Unknown]
  - Impaired healing [Unknown]
  - Rheumatoid arthritis [Unknown]
  - Condition aggravated [Unknown]
